FAERS Safety Report 12975008 (Version 2)
Quarter: 2017Q1

REPORT INFORMATION
  Report Type: Report from Study
  Country: None (occurrence: US)
  Receive Date: 20161125
  Receipt Date: 20170111
  Transmission Date: 20170428
  Serious: Yes (Other)
  Sender: FDA-Public Use
  Company Number: US-ABBVIE-16K-163-1785774-00

PATIENT
  Age: 61 Year
  Sex: Female

DRUGS (3)
  1. MORPHINE [Suspect]
     Active Substance: MORPHINE
     Indication: MUSCLE SPASMS
  2. MORPHINE [Suspect]
     Active Substance: MORPHINE
     Indication: MIGRAINE
     Route: 042
     Dates: start: 20161014, end: 20161014
  3. HUMIRA [Suspect]
     Active Substance: ADALIMUMAB
     Indication: RHEUMATOID ARTHRITIS
     Route: 058
     Dates: start: 201606, end: 201609

REACTIONS (7)
  - Blood potassium decreased [Recovered/Resolved]
  - Drug ineffective [Not Recovered/Not Resolved]
  - Muscle spasms [Recovered/Resolved]
  - Migraine [Recovered/Resolved]
  - Dehydration [Recovered/Resolved]
  - Drug hypersensitivity [Recovered/Resolved]
  - Tremor [Recovered/Resolved]

NARRATIVE: CASE EVENT DATE: 20161014
